FAERS Safety Report 10808218 (Version 1)
Quarter: 2015Q1

REPORT INFORMATION
  Report Type: Report from Study
  Country: US (occurrence: US)
  Receive Date: 20150217
  Receipt Date: 20150217
  Transmission Date: 20150721
  Serious: No
  Sender: FDA-Public Use
  Company Number: US-ABBVIE-14K-163-1230446-00

PATIENT
  Age: 55 Year
  Sex: Female

DRUGS (5)
  1. HUMIRA [Suspect]
     Active Substance: ADALIMUMAB
     Indication: GASTROINTESTINAL DISORDER
     Dates: start: 201401
  2. PREDNISONE. [Concomitant]
     Active Substance: PREDNISONE
     Indication: CROHN^S DISEASE
  3. ESTROGEN [Concomitant]
     Active Substance: ESTRONE\SUS SCROFA OVARY
     Indication: MENOPAUSE
     Dosage: OVER THE COUNTER
  4. HUMIRA [Suspect]
     Active Substance: ADALIMUMAB
     Indication: CROHN^S DISEASE
  5. HUMIRA [Suspect]
     Active Substance: ADALIMUMAB
     Indication: ARTHRITIS

REACTIONS (6)
  - Paranasal sinus discomfort [Recovering/Resolving]
  - Sputum discoloured [Recovering/Resolving]
  - Sinusitis [Recovering/Resolving]
  - Paranasal sinus hypersecretion [Recovering/Resolving]
  - Headache [Recovering/Resolving]
  - Sinus congestion [Recovering/Resolving]

NARRATIVE: CASE EVENT DATE: 201404
